FAERS Safety Report 21160536 (Version 1)
Quarter: 2022Q3

REPORT INFORMATION
  Report Type: Spontaneous
  Country: US (occurrence: None)
  Receive Date: 20220801
  Receipt Date: 20220801
  Transmission Date: 20221027
  Serious: Yes (Life-Threatening, Hospitalization, Disabling, Other)
  Sender: FDA-Public Use
  Company Number: None

PATIENT
  Age: 74 Year
  Sex: Female
  Weight: 83.7 kg

DRUGS (3)
  1. ENHERTU [Suspect]
     Active Substance: FAM-TRASTUZUMAB DERUXTECAN-NXKI
     Indication: Breast cancer
     Dosage: Q3 WEEKS
     Route: 042
     Dates: start: 20220223, end: 20220427
  2. DECADRON [Concomitant]
     Active Substance: DEXAMETHASONE
     Dates: start: 20210415, end: 20220516
  3. LOSARTAN [Concomitant]
     Active Substance: LOSARTAN
     Dates: start: 20200101, end: 20220516

REACTIONS (2)
  - Pneumonitis [None]
  - Acute respiratory distress syndrome [None]

NARRATIVE: CASE EVENT DATE: 20220517
